FAERS Safety Report 6090981-5 (Version None)
Quarter: 2009Q1

REPORT INFORMATION
  Report Type: 
  Country: None (occurrence: None)
  Receive Date: 20090219
  Receipt Date: 20090219
  Transmission Date: 20090719
  Serious: Yes (Other)
  Sender: FDA-Public Use
  Company Number: None

PATIENT
  Sex: Female
  Weight: 55.7924 kg

DRUGS (1)
  1. HYDROXYCHLOROQUINE [Suspect]
     Indication: CONNECTIVE TISSUE DISORDER
     Dosage: 200MG 2 A DAY

REACTIONS (2)
  - NAUSEA [None]
  - VOMITING [None]
